FAERS Safety Report 8194192-9 (Version None)
Quarter: 2012Q1

REPORT INFORMATION
  Report Type: 
  Country: None (occurrence: None)
  Receive Date: 20120308
  Receipt Date: 20120227
  Transmission Date: 20120608
  Serious: Yes (Disabling, Other)
  Sender: FDA-Public Use
  Company Number: DE-ROCHE-1035595

PATIENT
  Age: 75 Year
  Sex: Female
  Weight: 68 kg

DRUGS (9)
  1. DOCETAXEL [Suspect]
     Indication: BREAST CANCER
     Route: 042
     Dates: start: 20110601, end: 20110928
  2. SIMVASTATIN [Concomitant]
  3. DEXAMETHASONE [Concomitant]
     Indication: PROPHYLAXIS OF NAUSEA AND VOMITING
     Dates: start: 20110531, end: 20110930
  4. CARBOPLATIN [Suspect]
     Indication: BREAST CANCER
     Route: 042
     Dates: start: 20110601, end: 20110928
  5. PALONOSETRON [Concomitant]
     Indication: PROPHYLAXIS OF NAUSEA AND VOMITING
     Route: 042
     Dates: start: 20110601, end: 20110928
  6. LEVOTHYROXINE SODIUM [Concomitant]
  7. HERCEPTIN [Suspect]
     Indication: BREAST CANCER
     Route: 042
     Dates: start: 20110601
  8. HERCEPTIN [Suspect]
     Route: 042
     Dates: end: 20120111
  9. HERCEPTIN [Suspect]
     Route: 042

REACTIONS (3)
  - PAPILLOEDEMA [None]
  - SCOTOMA [None]
  - BLINDNESS [None]
